FAERS Safety Report 5310784-6 (Version None)
Quarter: 2007Q2

REPORT INFORMATION
  Report Type: 
  Country: None (occurrence: None)
  Receive Date: 20070428
  Receipt Date: 20070416
  Transmission Date: 20071010
  Serious: Yes (Hospitalization, Other)
  Sender: FDA-Public Use
  Company Number: US-PFIZER INC-2007020291

PATIENT
  Sex: Female
  Weight: 99.8 kg

DRUGS (38)
  1. CELEBREX [Suspect]
     Indication: PAIN
  2. ZYRTEC [Suspect]
  3. RELPAX [Suspect]
  4. XALATAN [Suspect]
  5. LYRICA [Interacting]
     Indication: NEURALGIA
  6. AZITHROMYCIN [Suspect]
  7. TIKOSYN [Concomitant]
     Indication: HEART RATE IRREGULAR
  8. TIKOSYN [Concomitant]
  9. ATENOLOL [Concomitant]
  10. LASIX [Interacting]
  11. NEXIUM [Interacting]
  12. PLENDIL [Concomitant]
  13. NITROGLYCERIN [Concomitant]
     Route: 061
  14. PLAVIX [Concomitant]
  15. ACETYLSALICYLIC ACID SRT [Concomitant]
  16. ZETIA [Concomitant]
  17. TYLENOL W/ CODEINE NO. 3 [Concomitant]
  18. ZANTAC [Concomitant]
  19. TETRACYCLINE [Concomitant]
  20. E-MYCIN [Concomitant]
  21. STATINS [Concomitant]
  22. ANTIDEPRESSANTS [Concomitant]
  23. ANTIEPILEPTICS [Concomitant]
  24. ANALGESICS [Concomitant]
  25. NITROTAB [Concomitant]
     Route: 048
  26. PENICILLIN [Concomitant]
  27. CLINORIL [Concomitant]
  28. DEMEROL [Concomitant]
  29. OXYCODONE HCL [Concomitant]
  30. DARVON [Concomitant]
  31. CAFFEINE [Concomitant]
  32. PERCOCET [Concomitant]
  33. MENTHOL [Concomitant]
  34. ALL OTHER THERAPEUTIC PRODUCTS [Concomitant]
  35. ALL OTHER THERAPEUTIC PRODUCTS [Concomitant]
  36. IODINE [Concomitant]
  37. SULFONAMIDES [Concomitant]
  38. NIACIN [Concomitant]

REACTIONS (29)
  - ANGINA PECTORIS [None]
  - ARTERIAL DISORDER [None]
  - BLOOD CHOLESTEROL INCREASED [None]
  - CONTUSION [None]
  - CORONARY ARTERY DISEASE [None]
  - CORONARY ARTERY OCCLUSION [None]
  - DEHYDRATION [None]
  - DEPRESSION [None]
  - DRESSLER'S SYNDROME [None]
  - DRUG INEFFECTIVE [None]
  - DRUG INTERACTION [None]
  - EAR DISORDER [None]
  - EAR INFECTION [None]
  - FLUID RETENTION [None]
  - HIGH RISK PREGNANCY [None]
  - HYPERTENSION [None]
  - IMPAIRED HEALING [None]
  - INCONTINENCE [None]
  - MALARIA [None]
  - MARFAN'S SYNDROME [None]
  - MIGRAINE WITH AURA [None]
  - MULTIPLE ALLERGIES [None]
  - MYOCARDIAL INFARCTION [None]
  - NEURALGIA [None]
  - PAIN [None]
  - SICK SINUS SYNDROME [None]
  - TINNITUS [None]
  - TRIGEMINAL NEURALGIA [None]
  - UTERINE ENLARGEMENT [None]
